FAERS Safety Report 7544459-X (Version None)
Quarter: 2011Q2

REPORT INFORMATION
  Report Type: 
  Country: None (occurrence: None)
  Receive Date: 20110613
  Receipt Date: 20090114
  Transmission Date: 20111010
  Serious: Yes (Other)
  Sender: FDA-Public Use
  Company Number: PHHY2009CA01737

PATIENT
  Sex: Male

DRUGS (1)
  1. SANDOSTATIN LAR [Suspect]
     Indication: GASTRINOMA
     Dosage: 30 MG, QMO
     Route: 030
     Dates: start: 20060628

REACTIONS (2)
  - INTESTINAL OBSTRUCTION [None]
  - LIVER DISORDER [None]
